FAERS Safety Report 5661082-2 (Version None)
Quarter: 2008Q1

REPORT INFORMATION
  Report Type: 
  Country: None (occurrence: None)
  Receive Date: 20080204
  Receipt Date: 20071207
  Transmission Date: 20080703
  Serious: Yes (Other)
  Sender: FDA-Public Use
  Company Number: PHEH2007US15667

PATIENT
  Age: 74 Year
  Sex: Female

DRUGS (5)
  1. EXELON [Suspect]
     Indication: DEMENTIA ALZHEIMER'S TYPE
     Dosage: 4.6 MG, QD, TRANSDERMAL ; 9.5 MG, QD, TRANSDERMAL
     Route: 062
     Dates: start: 20071001, end: 20071101
  2. EXELON [Suspect]
     Indication: DEMENTIA ALZHEIMER'S TYPE
     Dosage: 4.6 MG, QD, TRANSDERMAL ; 9.5 MG, QD, TRANSDERMAL
     Route: 062
     Dates: start: 20071101
  3. ZOLOFT [Concomitant]
  4. AGGRENOX [Concomitant]
  5. SIMVASTATIN [Concomitant]

REACTIONS (3)
  - ALANINE AMINOTRANSFERASE INCREASED [None]
  - ANOREXIA [None]
  - ASPARTATE AMINOTRANSFERASE INCREASED [None]
